APPROVED DRUG PRODUCT: METOPROLOL SUCCINATE
Active Ingredient: METOPROLOL SUCCINATE
Strength: EQ 25MG TARTRATE
Dosage Form/Route: TABLET, EXTENDED RELEASE;ORAL
Application: A077779 | Product #001
Applicant: NESHER PHARMACEUTICALS USA LLC
Approved: Mar 20, 2008 | RLD: No | RS: No | Type: DISCN